FAERS Safety Report 8395484-0 (Version None)
Quarter: 2012Q2

REPORT INFORMATION
  Report Type: 
  Country: None (occurrence: None)
  Receive Date: 20120530
  Receipt Date: 20110408
  Transmission Date: 20120825
  Serious: No
  Sender: FDA-Public Use
  Company Number: US-GLAXOSMITHKLINE-A0922097A

PATIENT
  Age: 60 Year
  Sex: Female

DRUGS (3)
  1. VENTOLIN [Suspect]
     Indication: ASTHMA
     Dosage: 2PUFF AS REQUIRED
     Route: 055
     Dates: start: 19910101
  2. ADVAIR DISKUS 100/50 [Suspect]
     Indication: ASTHMA
     Dosage: 1PUFF TWICE PER DAY
     Route: 055
     Dates: start: 20090401
  3. PREDNISONE TAB [Concomitant]

REACTIONS (7)
  - PAIN [None]
  - INFLUENZA LIKE ILLNESS [None]
  - DYSPNOEA [None]
  - COLD SWEAT [None]
  - VOMITING [None]
  - DRUG INEFFECTIVE [None]
  - MUSCLE SPASMS [None]
